FAERS Safety Report 8026815-9 (Version None)
Quarter: 2012Q1

REPORT INFORMATION
  Report Type: 
  Country: None (occurrence: None)
  Receive Date: 20120106
  Receipt Date: 20111228
  Transmission Date: 20120608
  Serious: Yes (Hospitalization)
  Sender: FDA-Public Use
  Company Number: US-AMGEN-USASP2011069213

PATIENT
  Age: 61 Year
  Sex: Male

DRUGS (7)
  1. FLUDROCORTISONE [Concomitant]
  2. VITAMIN D [Concomitant]
  3. XGEVA [Suspect]
     Indication: PROSTATE CANCER METASTATIC
     Dosage: 120 MG, Q4WK
     Dates: start: 20111123
  4. LASIX [Concomitant]
  5. EPOGEN [Suspect]
     Indication: PRODUCT USED FOR UNKNOWN INDICATION
     Dosage: 200 MUG, QMO
  6. COLCHICINE [Concomitant]
  7. INSULIN [Concomitant]

REACTIONS (2)
  - HYPOCALCAEMIA [None]
  - ASTHENIA [None]
